FAERS Safety Report 8434179-1 (Version None)
Quarter: 2012Q2

REPORT INFORMATION
  Report Type: 
  Country: None (occurrence: None)
  Receive Date: 20120613
  Receipt Date: 20120607
  Transmission Date: 20120825
  Serious: Yes (Hospitalization, Other)
  Sender: FDA-Public Use
  Company Number: US-ABBOTT-12P-163-0907575-00

PATIENT
  Sex: Male
  Weight: 128.94 kg

DRUGS (6)
  1. HUMIRA [Suspect]
     Indication: PSORIATIC ARTHROPATHY
  2. MUSCLE RELAXANT [Concomitant]
     Indication: PSORIATIC ARTHROPATHY
  3. MULTIPLE MEDICATIONS [Concomitant]
     Indication: PRODUCT USED FOR UNKNOWN INDICATION
  4. MUSCLE RELAXANT [Concomitant]
     Indication: RHEUMATOID ARTHRITIS
  5. REMICADE [Suspect]
     Indication: PSORIATIC ARTHROPATHY
  6. UNKNOWN MEDICATION [Concomitant]
     Indication: PAIN

REACTIONS (11)
  - MYOCARDIAL INFARCTION [None]
  - SEPTIC SHOCK [None]
  - CONFUSIONAL STATE [None]
  - PNEUMONIA [None]
  - CELLULITIS [None]
  - CARDIAC FAILURE CONGESTIVE [None]
  - CONDITION AGGRAVATED [None]
  - HYPOTENSION [None]
  - OEDEMA PERIPHERAL [None]
  - DYSPNOEA EXERTIONAL [None]
  - STAPHYLOCOCCAL INFECTION [None]
